FAERS Safety Report 6745701-5 (Version None)
Quarter: 2010Q2

REPORT INFORMATION
  Report Type: 
  Country: None (occurrence: None)
  Receive Date: 20100528
  Receipt Date: 20100517
  Transmission Date: 20101027
  Serious: Yes (Other)
  Sender: FDA-Public Use
  Company Number: BR-JNJFOC-20100506657

PATIENT
  Age: 15 Day
  Sex: Female
  Weight: 3 kg

DRUGS (2)
  1. TYLENOL (CAPLET) [Suspect]
     Route: 048
  2. TYLENOL (CAPLET) [Suspect]
     Indication: PAIN
     Route: 048

REACTIONS (2)
  - ACCIDENTAL OVERDOSE [None]
  - HEPATOTOXICITY [None]
